FAERS Safety Report 7002955-8 (Version None)
Quarter: 2010Q3

REPORT INFORMATION
  Report Type: 
  Country: None (occurrence: None)
  Receive Date: 20100920
  Receipt Date: 20100908
  Transmission Date: 20110219
  Serious: Yes (Other)
  Sender: FDA-Public Use
  Company Number: PHHY2010FR56302

PATIENT
  Sex: Male

DRUGS (9)
  1. AFINITOR [Suspect]
     Indication: RENAL CANCER
     Dosage: 5 MG, QD
     Dates: start: 20100809
  2. LOXEN [Suspect]
     Indication: HYPERTENSION
     Dosage: 50 MG, QD
     Route: 048
  3. LOXEN [Suspect]
     Dosage: 20 MG, QD
     Route: 048
     Dates: end: 20100817
  4. IRBESARTAN [Concomitant]
     Dosage: UNK
     Dates: end: 20100817
  5. COAPROVEL [Concomitant]
     Dosage: UNK
     Dates: start: 20100817
  6. PLAVIX [Concomitant]
     Indication: ARTERITIS
  7. NAFTIDROFURYL [Concomitant]
  8. KARDEGIC [Concomitant]
  9. LOPERAMIDE [Concomitant]

REACTIONS (4)
  - ERYSIPELAS [None]
  - ERYTHEMA [None]
  - OEDEMA PERIPHERAL [None]
  - THROMBOSIS [None]
